FAERS Safety Report 7928309-5 (Version None)
Quarter: 2011Q4

REPORT INFORMATION
  Report Type: 
  Country: None (occurrence: None)
  Receive Date: 20111118
  Receipt Date: 20111106
  Transmission Date: 20120403
  Serious: Yes (Death)
  Sender: FDA-Public Use
  Company Number: TR-NOVOPROD-336850

PATIENT

DRUGS (12)
  1. VITAMIN K TAB [Concomitant]
     Dosage: 1X1
     Route: 042
     Dates: start: 20111001, end: 20111006
  2. CLINOMEL [Concomitant]
     Dosage: 40 CC/HOUR
     Route: 042
     Dates: start: 20111001, end: 20111006
  3. CERNEVIT                           /01027001/ [Concomitant]
     Dosage: 1X1
     Route: 042
     Dates: start: 20111001, end: 20111006
  4. DEPAKENE [Concomitant]
     Dosage: 500 MG, QD
     Route: 048
     Dates: start: 20111001, end: 20111006
  5. DEKORT                             /00016001/ [Concomitant]
     Dosage: 4 MG, QD
     Route: 042
     Dates: start: 20111001, end: 20111006
  6. NOVOSEVEN RT [Suspect]
     Indication: POSTPARTUM HAEMORRHAGE
     Dosage: 90 A?G/KG, QD (7 MG/DOSE)
     Route: 065
     Dates: start: 20111005, end: 20111005
  7. DOPAMINE HCL [Concomitant]
     Dosage: 30 CC/HOUR
     Route: 042
     Dates: start: 20111001, end: 20111006
  8. VOLUVEN [Concomitant]
     Dosage: UNK
     Route: 042
     Dates: start: 20111001, end: 20111006
  9. AVELOX [Concomitant]
     Dosage: 400 MG, QD
     Route: 048
     Dates: start: 20111001, end: 20111006
  10. NOREPINEPHRINE BITARTRATE [Concomitant]
     Dosage: UNK
     Route: 042
     Dates: start: 20111001, end: 20111006
  11. NOOTROPIL [Concomitant]
     Dosage: 1200 MG, QD
     Route: 042
     Dates: start: 20111001
  12. DOBUTAMINE HCL [Concomitant]
     Dosage: UNK
     Route: 042
     Dates: start: 20111001, end: 20111006

REACTIONS (3)
  - MULTI-ORGAN FAILURE [None]
  - SHOCK HAEMORRHAGIC [None]
  - DISSEMINATED INTRAVASCULAR COAGULATION [None]
